FAERS Safety Report 17731761 (Version 2)
Quarter: 2020Q2

REPORT INFORMATION
  Report Type: Spontaneous
  Country: US (occurrence: US)
  Receive Date: 20200501
  Receipt Date: 20200525
  Transmission Date: 20200714
  Serious: No
  Sender: FDA-Public Use
  Company Number: US-INCYTE CORPORATION-2020IN003976

PATIENT

DRUGS (4)
  1. JAKAFI [Suspect]
     Active Substance: RUXOLITINIB
     Dosage: 15 MILLIGRAM, QD
     Route: 048
     Dates: start: 202004
  2. JAKAFI [Suspect]
     Active Substance: RUXOLITINIB
     Dosage: 20 MILLIGRAM (FOUR 5 MG TABLETS), QD
     Route: 048
     Dates: start: 201907
  3. TIZANIDINE. [Suspect]
     Active Substance: TIZANIDINE
     Indication: PRODUCT USED FOR UNKNOWN INDICATION
     Dosage: 4 MILLIGRAM, BID
     Route: 065
  4. TIZANIDINE. [Suspect]
     Active Substance: TIZANIDINE
     Dosage: 2 MILLIGRAM (HALF OF 4 MG TAB), QD AT BEDTIME
     Route: 065

REACTIONS (5)
  - Drug ineffective [Unknown]
  - Muscle spasms [Recovered/Resolved]
  - Gait inability [Unknown]
  - Dizziness [Recovered/Resolved]
  - Pruritus [Unknown]
